FAERS Safety Report 9049397 (Version 1)
Quarter: 2013Q1

REPORT INFORMATION
  Report Type: Spontaneous
  Country: US (occurrence: US)
  Receive Date: 20130205
  Receipt Date: 20130205
  Transmission Date: 20140127
  Serious: No
  Sender: FDA-Public Use
  Company Number: US-PFIZER INC-2013044191

PATIENT
  Age: 68 Year
  Sex: Female
  Weight: 59.86 kg

DRUGS (1)
  1. LYRICA [Suspect]
     Dosage: 50 MG, 3X/DAY
     Dates: start: 20130123

REACTIONS (2)
  - Therapeutic response unexpected [Unknown]
  - Pre-existing condition improved [Unknown]
